FAERS Safety Report 11095841 (Version 1)
Quarter: 2015Q2

REPORT INFORMATION
  Report Type: Spontaneous
  Country: BR (occurrence: BR)
  Receive Date: 20150507
  Receipt Date: 20150507
  Transmission Date: 20150821
  Serious: Yes (Other)
  Sender: FDA-Public Use
  Company Number: PHHY2015BR053213

PATIENT
  Sex: Male
  Weight: 82 kg

DRUGS (4)
  1. FORASEQ [Suspect]
     Active Substance: BUDESONIDE\FORMOTEROL FUMARATE
     Indication: SLEEP DISORDER
  2. MICARDIS [Suspect]
     Active Substance: TELMISARTAN
     Indication: HEART RATE IRREGULAR
     Dosage: 1 DF, QD (IN THE MORNING, IN FASTING)
     Route: 048
  3. RITMONORM [Suspect]
     Active Substance: PROPAFENONE HYDROCHLORIDE
     Indication: ARRHYTHMIA
     Dosage: 1 DF, QD
     Route: 048
  4. FORASEQ [Suspect]
     Active Substance: BUDESONIDE\FORMOTEROL FUMARATE
     Indication: WHEEZING
     Dosage: 2 DF, QD
     Route: 055

REACTIONS (11)
  - Dengue fever [Unknown]
  - Chest discomfort [Unknown]
  - Influenza [Not Recovered/Not Resolved]
  - Pain [Unknown]
  - Peripheral swelling [Recovered/Resolved]
  - Erythema [Recovered/Resolved]
  - Lung disorder [Unknown]
  - Hypersensitivity [Not Recovered/Not Resolved]
  - Expired product administered [Unknown]
  - Wheezing [Unknown]
  - Off label use [Unknown]
